FAERS Safety Report 8917675 (Version 2)
Quarter: 2012Q4

REPORT INFORMATION
  Report Type: 
  Country: US (occurrence: US)
  Receive Date: 20121119
  Receipt Date: 20121206
  Transmission Date: 20130627
  Serious: No
  Sender: FDA-Public Use
  Company Number: US-009507513-1211USA005916

PATIENT
  Age: 69 Year
  Sex: Male
  Weight: 78.46 kg

DRUGS (3)
  1. CLARITIN [Suspect]
     Indication: RHINORRHOEA
     Dosage: 10 mg, Once
     Route: 048
     Dates: start: 20120919, end: 20120919
  2. CLARITIN [Suspect]
     Indication: MEDICAL OBSERVATION
  3. SIMVASTATIN [Concomitant]
     Indication: BLOOD CHOLESTEROL
     Dosage: UNK, Unknown

REACTIONS (2)
  - Drug ineffective [Unknown]
  - Expired drug administered [Unknown]
